FAERS Safety Report 7810978-1 (Version None)
Quarter: 2011Q4

REPORT INFORMATION
  Report Type: 
  Country: None (occurrence: None)
  Receive Date: 20111013
  Receipt Date: 20111004
  Transmission Date: 20120403
  Serious: Yes (Other)
  Sender: FDA-Public Use
  Company Number: US-JNJFOC-20111002494

PATIENT
  Sex: Female

DRUGS (3)
  1. TYLENOL-500 [Concomitant]
     Indication: PAIN
  2. IBUPROFEN [Concomitant]
     Indication: PAIN
     Route: 048
  3. SIMPONI [Suspect]
     Indication: RHEUMATOID ARTHRITIS
     Route: 058
     Dates: start: 20110930

REACTIONS (3)
  - SELF-INJURIOUS IDEATION [None]
  - DEPRESSION [None]
  - ARTHRALGIA [None]
